FAERS Safety Report 4589495-0 (Version None)
Quarter: 2005Q1

REPORT INFORMATION
  Report Type: 
  Country: None (occurrence: None)
  Receive Date: 20050216
  Receipt Date: 20050204
  Transmission Date: 20050727
  Serious: Yes (Hospitalization, Other)
  Sender: FDA-Public Use
  Company Number: 2005-BP-01705RO

PATIENT
  Age: 63 Year
  Sex: Female

DRUGS (3)
  1. AZATHIOPRINE [Suspect]
     Indication: SCLERODERMA
     Dosage: 100 MG/DAY, PO
     Route: 048
  2. PREDNISONE [Concomitant]
  3. D-PENICILLAMINE (PENICILLAMINE) [Concomitant]

REACTIONS (11)
  - ALANINE AMINOTRANSFERASE INCREASED [None]
  - ASPARTATE AMINOTRANSFERASE INCREASED [None]
  - BLOOD CREATINE PHOSPHOKINASE INCREASED [None]
  - BLOOD IMMUNOGLOBULIN M INCREASED [None]
  - BLOOD LACTATE DEHYDROGENASE INCREASED [None]
  - CYTOMEGALOVIRUS ANTIBODY POSITIVE [None]
  - CYTOMEGALOVIRUS ANTIGEN POSITIVE [None]
  - LYMPHOCYTE STIMULATION TEST POSITIVE [None]
  - MUSCLE DISORDER [None]
  - NEUTROPHIL COUNT INCREASED [None]
  - STEVENS-JOHNSON SYNDROME [None]
